FAERS Safety Report 8125254-X (Version None)
Quarter: 2012Q1

REPORT INFORMATION
  Report Type: 
  Country: None (occurrence: None)
  Receive Date: 20120206
  Receipt Date: 20120119
  Transmission Date: 20120608
  Serious: Yes (Life-Threatening, Hospitalization)
  Sender: FDA-Public Use
  Company Number: TPA2012A00415

PATIENT
  Age: 69 Year
  Sex: Female

DRUGS (5)
  1. PREDNISONE TAB [Concomitant]
  2. ADENURIC (FEBUXOSTAT) [Suspect]
     Indication: GOUT
     Dosage: 120 MG, DAILY, ORAL
     Route: 048
     Dates: start: 20110801, end: 20110803
  3. OXYCODONE HCL [Concomitant]
  4. BONDIOL (ALFACALCIDOL) [Concomitant]
  5. DEKRISTOL (COLECALCIFEROL) [Concomitant]

REACTIONS (3)
  - RENAL FAILURE ACUTE [None]
  - HYPERKALAEMIA [None]
  - ACIDOSIS [None]
